FAERS Safety Report 4572213-X (Version None)
Quarter: 2005Q1

REPORT INFORMATION
  Report Type: 
  Country: None (occurrence: None)
  Receive Date: 20050203
  Receipt Date: 20050128
  Transmission Date: 20050727
  Serious: Yes (Hospitalization)
  Sender: FDA-Public Use
  Company Number: 2005SE00572

PATIENT
  Age: 60 Year
  Sex: Male

DRUGS (3)
  1. ATACAND [Suspect]
     Indication: DIABETIC NEPHROPATHY
     Dosage: 2,4 OR 8 MG
     Dates: start: 20040901, end: 20040928
  2. TCV-116 [Suspect]
     Indication: DIABETIC NEPHROPATHY
     Dosage: 2,4 OR 8 MG
     Dates: start: 20040929, end: 20041026
  3. TCV-116 [Suspect]
     Indication: DIABETES MELLITUS
     Dosage: 2,4,8 OR 16 MG
     Dates: start: 20041027

REACTIONS (5)
  - BACK PAIN [None]
  - CARDIAC FAILURE ACUTE [None]
  - NOCTURNAL DYSPNOEA [None]
  - OEDEMA [None]
  - SILENT MYOCARDIAL INFARCTION [None]
